FAERS Safety Report 5575075-7 (Version None)
Quarter: 2007Q4

REPORT INFORMATION
  Report Type: 
  Country: None (occurrence: None)
  Receive Date: 20071130
  Receipt Date: 20070921
  Transmission Date: 20080405
  Serious: No
  Sender: FDA-Public Use
  Company Number: PHEH2007US11605

PATIENT
  Sex: Male
  Weight: 104.8 kg

DRUGS (1)
  1. TEKTURNA [Suspect]

REACTIONS (6)
  - BLOOD PRESSURE ABNORMAL [None]
  - DYSPNOEA [None]
  - NERVOUSNESS [None]
  - PAIN [None]
  - PALPITATIONS [None]
  - PANIC ATTACK [None]
